FAERS Safety Report 10005355 (Version 1)
Quarter: 2014Q1

REPORT INFORMATION
  Report Type: Report from Study
  Country: US (occurrence: US)
  Receive Date: 20140313
  Receipt Date: 20140313
  Transmission Date: 20141002
  Serious: Yes (Death)
  Sender: FDA-Public Use
  Company Number: US-UCBSA-114540

PATIENT
  Sex: 0

DRUGS (2)
  1. LEVETIRACETAM [Suspect]
     Indication: CONVULSION PROPHYLAXIS
     Dosage: LOADING DOSE
     Route: 042
  2. LEVETIRACETAM [Suspect]
     Indication: PROPHYLAXIS
     Dosage: 500-1000MG INTRAVENOUSLY OR ORALLY TWICE DAILY

REACTIONS (1)
  - Death [Fatal]
